FAERS Safety Report 9819889 (Version 1)
Quarter: 2013Q4

REPORT INFORMATION
  Report Type: Spontaneous
  Country: US (occurrence: None)
  Receive Date: 20131223
  Receipt Date: 20131223
  Transmission Date: 20140711
  Serious: No
  Sender: FDA-Public Use
  Company Number: 219299

PATIENT
  Age: 50 Year
  Sex: Male

DRUGS (1)
  1. PICATO (0.015 %, GEL) [Suspect]
     Indication: PRECANCEROUS SKIN LESION
     Dosage: GEL, 2 TUBES PER DAY FOR 3 DAYS
     Dates: start: 20120604, end: 20120606

REACTIONS (5)
  - Drug ineffective [None]
  - Drug administration error [None]
  - Application site reaction [None]
  - Overdose [None]
  - Drug administered at inappropriate site [None]
